FAERS Safety Report 5777865-4 (Version None)
Quarter: 2008Q2

REPORT INFORMATION
  Report Type: 
  Country: None (occurrence: None)
  Receive Date: 20080618
  Receipt Date: 20080610
  Transmission Date: 20081010
  Serious: Yes (Other)
  Sender: FDA-Public Use
  Company Number: US-ALLERGAN-0804642US

PATIENT
  Sex: Female
  Weight: 49.887 kg

DRUGS (4)
  1. RESTASIS [Suspect]
     Indication: DRY EYE
     Dosage: 1 GTT, Q12H
     Route: 047
     Dates: start: 20080321, end: 20080415
  2. NEXIUM [Concomitant]
     Indication: GASTROOESOPHAGEAL REFLUX DISEASE
     Dosage: 40 MG, QD
     Route: 048
  3. ENABLEX [Concomitant]
     Indication: CYSTITIS INTERSTITIAL
     Dosage: 15 MG, QD
     Route: 048
  4. LOESTRIN 1.5/30 [Concomitant]
     Indication: CONTRACEPTION
     Dosage: UNK, QD
     Route: 048

REACTIONS (1)
  - ASTHMA [None]
